FAERS Safety Report 7965272-5 (Version None)
Quarter: 2011Q4

REPORT INFORMATION
  Report Type: 
  Country: None (occurrence: None)
  Receive Date: 20111208
  Receipt Date: 20111128
  Transmission Date: 20120403
  Serious: Yes (Hospitalization)
  Sender: FDA-Public Use
  Company Number: US-BAYER-2011-053847

PATIENT
  Age: 16 Year
  Sex: Female
  Weight: 57 kg

DRUGS (6)
  1. YAZ [Suspect]
     Indication: ACNE
     Dosage: UNK
     Dates: start: 20081202, end: 20090629
  2. DIPHENHYDRAMINE HCL [Concomitant]
     Dosage: 50 MG, UNK
     Route: 048
     Dates: start: 20090617
  3. MINOCYCLINE HCL [Concomitant]
     Indication: ACNE
     Dosage: 50 MG, UNK
     Route: 048
     Dates: start: 20090527
  4. AMOXICILLIN [Concomitant]
     Indication: PNEUMONIA
     Dosage: UNK
     Route: 048
     Dates: start: 20090619
  5. NAPROXEN [Concomitant]
     Dosage: 500 MG, UNK
     Route: 048
     Dates: start: 20090622
  6. AZITHROMYCIN [Concomitant]
     Indication: PNEUMONIA
     Dosage: UNK
     Route: 048
     Dates: start: 20090619

REACTIONS (2)
  - PULMONARY EMBOLISM [None]
  - PULMONARY INFARCTION [None]
